FAERS Safety Report 4512789-1 (Version None)
Quarter: 2004Q4

REPORT INFORMATION
  Report Type: 
  Country: None (occurrence: None)
  Receive Date: 20041119
  Receipt Date: 20041119
  Transmission Date: 20050328
  Serious: Yes (Hospitalization)
  Sender: FDA-Public Use
  Company Number: None

PATIENT
  Age: 16 Month
  Sex: Male
  Weight: 12 kg

DRUGS (2)
  1. THALIDOMIDE [Suspect]
     Indication: BRAIN NEOPLASM
     Dosage: 100 MG NIGHTLY ORAL
     Route: 048
     Dates: start: 20041006, end: 20041113
  2. TEMOZOLOMIDE [Suspect]
     Indication: BRAIN NEOPLASM
     Dosage: 200  MG M2/DAILY ORAL
     Route: 048
     Dates: start: 20041006, end: 20041113

REACTIONS (4)
  - BLOOD CULTURE POSITIVE [None]
  - CATHETER SEPSIS [None]
  - FUNGAL INFECTION [None]
  - PNEUMONIA [None]
